FAERS Safety Report 9181298 (Version 4)
Quarter: 2013Q4

REPORT INFORMATION
  Report Type: Spontaneous
  Country: JP (occurrence: JP)
  Receive Date: 20130322
  Receipt Date: 20131007
  Transmission Date: 20140711
  Serious: Yes (Life-Threatening)
  Sender: FDA-Public Use
  Company Number: JP-009507513-2011SP021438

PATIENT
  Age: 21 Year
  Sex: Male
  Weight: 67 kg

DRUGS (6)
  1. BRIDION INTRAVENOUS 200MG [Suspect]
     Indication: NEUROMUSCULAR BLOCKADE REVERSAL
     Dosage: 200 MG, QD (9:11)
     Route: 042
     Dates: start: 20110105, end: 20110105
  2. ESLAX INTRAVENOUS 50MG/5.0ML [Suspect]
     Indication: NEUROMUSCULAR BLOCKING THERAPY
     Dosage: 50 MG, QD (8:41)
     Route: 042
     Dates: start: 20110105, end: 20110105
  3. ULTIVA [Concomitant]
     Dosage: 8:37-9:10, DAILY DOSAGE UNKNOWN
     Dates: start: 20110105, end: 20110105
  4. DIPRIVAN [Concomitant]
     Dosage: 08:38-09:10, DAILY DOSAGE UNKNOWN
     Dates: start: 20110105, end: 20110105
  5. FENTANYL [Concomitant]
     Indication: ANALGESIC THERAPY
     Dosage: BEFORE THE END OF OPERATION, DAILY DOSAGE UNKNOWN
     Dates: start: 20110105, end: 20110105
  6. FLURBIPROFEN AXETIL [Concomitant]
     Indication: ANALGESIC THERAPY
     Dosage: BEFORE THE END OF THE OPERATION, DAILY DOSAGE UNKNOWN
     Dates: start: 20110105, end: 20110105

REACTIONS (7)
  - Generalised erythema [Recovered/Resolved]
  - Oxygen saturation decreased [Recovered/Resolved]
  - Dyspnoea [Recovered/Resolved]
  - Anaphylactoid reaction [Recovered/Resolved]
  - Blood pressure decreased [Recovered/Resolved]
  - Tachycardia [Recovered/Resolved]
  - Nausea [Recovered/Resolved]
